FAERS Safety Report 4459893-4 (Version None)
Quarter: 2004Q3

REPORT INFORMATION
  Report Type: 
  Country: None (occurrence: None)
  Receive Date: 20040928
  Receipt Date: 20030827
  Transmission Date: 20050211
  Serious: No
  Sender: FDA-Public Use
  Company Number: US-GLAXOSMITHKLINE-A0423715A

PATIENT
  Age: 72 Year
  Sex: Female

DRUGS (11)
  1. SEREVENT [Suspect]
     Dosage: 1PUFF TWICE PER DAY
     Route: 055
  2. ATROVENT [Concomitant]
  3. SINGULAIR [Concomitant]
  4. LOTREL [Concomitant]
  5. HYDROCHLOROTHIAZIDE [Concomitant]
  6. MELLARIL [Concomitant]
  7. ASPIRIN [Concomitant]
  8. TYLENOL [Concomitant]
  9. QUESTRAN [Concomitant]
  10. FLOVENT [Concomitant]
     Route: 055
  11. ALBUTEROL [Concomitant]
     Route: 065

REACTIONS (3)
  - DRUG INEFFECTIVE [None]
  - DYSPNOEA [None]
  - PAIN IN EXTREMITY [None]
